FAERS Safety Report 13201169 (Version 6)
Quarter: 2019Q1

REPORT INFORMATION
  Report Type: Report from Study
  Country: US (occurrence: US)
  Receive Date: 20170209
  Receipt Date: 20190313
  Transmission Date: 20190417
  Serious: Yes (Other)
  Sender: FDA-Public Use
  Company Number: US-BRISTOL-MYERS SQUIBB COMPANY-BMS-2017-008314

PATIENT
  Age: 64 Year
  Sex: Female

DRUGS (2)
  1. ABATACEPT [Suspect]
     Active Substance: ABATACEPT
     Indication: RHEUMATOID ARTHRITIS
     Dosage: UNK UNK, QMO
     Route: 042
     Dates: start: 2010
  2. ABATACEPT [Suspect]
     Active Substance: ABATACEPT
     Indication: RHEUMATOID ARTHRITIS
     Dosage: 125 MG/ML, QWK
     Route: 058
     Dates: start: 2016

REACTIONS (13)
  - Thrombosis [Unknown]
  - Psoriasis [Unknown]
  - Bronchitis [Unknown]
  - Mitral valve replacement [Unknown]
  - Respiratory tract congestion [Unknown]
  - Pneumonia [Unknown]
  - Product leakage [Unknown]
  - Condition aggravated [Unknown]
  - Arthralgia [Unknown]
  - Fatigue [Unknown]
  - Malaise [Unknown]
  - Urinary tract infection [Unknown]
  - Product quality issue [Unknown]

NARRATIVE: CASE EVENT DATE: 201812
